FAERS Safety Report 15962379 (Version 1)
Quarter: 2019Q1

REPORT INFORMATION
  Report Type: Spontaneous
  Country: ES (occurrence: ES)
  Receive Date: 20190214
  Receipt Date: 20190214
  Transmission Date: 20190417
  Serious: Yes (Hospitalization)
  Sender: FDA-Public Use
  Company Number: ES-AMGEN-ESPSP2019020852

PATIENT
  Age: 66 Year
  Sex: Female
  Weight: 68 kg

DRUGS (12)
  1. DELTIUS [Concomitant]
     Active Substance: CHOLECALCIFEROL
     Dosage: UNK (25,000 IU/2.5 ML)
     Route: 048
  2. PROLIA [Suspect]
     Active Substance: DENOSUMAB
     Indication: OSTEOPOROSIS
     Dosage: 60 MG, Q6MO
     Route: 058
     Dates: start: 20140403, end: 201609
  3. VENLAFAXINA NORMON [Concomitant]
     Dosage: 50 MG, UNK
     Route: 048
  4. MONOPROST [Concomitant]
     Active Substance: LATANOPROST
     Dosage: 50 MG/ML, UNK
     Route: 047
  5. PROLIA [Suspect]
     Active Substance: DENOSUMAB
     Dosage: 60 MG, Q6MO
     Route: 058
     Dates: start: 201712, end: 201812
  6. CARBOCAL D [Concomitant]
     Active Substance: CALCIUM\VITAMIN D
     Dosage: UNK (600 MG/400 IU)
     Route: 048
  7. ROSUVASTATINA [Concomitant]
     Active Substance: ROSUVASTATIN
     Route: 048
  8. NEXIUM [Concomitant]
     Active Substance: ESOMEPRAZOLE MAGNESIUM
     Dosage: 40 MG, UNK
     Route: 048
  9. RIVOTRIL [Concomitant]
     Active Substance: CLONAZEPAM
     Dosage: 2.5 ML, UNK (2.5 MG/ML ORAL DROPS IN SOLUTION)
     Route: 048
  10. MAXALT [Concomitant]
     Active Substance: RIZATRIPTAN BENZOATE
     Dosage: 10 MG, UNK
     Route: 048
  11. FENDIVIA [Concomitant]
     Active Substance: FENTANYL
     Dosage: 25 MG, QHS
     Route: 062
  12. ACOXXEL [Concomitant]
     Active Substance: ETORICOXIB
     Dosage: 120 MG, UNK
     Route: 048

REACTIONS (3)
  - Rebound effect [Not Recovered/Not Resolved]
  - Thoracic vertebral fracture [Not Recovered/Not Resolved]
  - Multiple fractures [Not Recovered/Not Resolved]

NARRATIVE: CASE EVENT DATE: 20171116
